FAERS Safety Report 7316492-4 (Version None)
Quarter: 2011Q1

REPORT INFORMATION
  Report Type: 
  Country: None (occurrence: None)
  Receive Date: 20110226
  Receipt Date: 20100713
  Transmission Date: 20110831
  Serious: Yes (Other)
  Sender: FDA-Public Use
  Company Number: US-ALLERGAN-1002215US

PATIENT
  Age: 31 Year
  Sex: Female
  Weight: 47.619 kg

DRUGS (1)
  1. BOTOX COSMETIC [Suspect]
     Indication: HYPERHIDROSIS
     Dosage: 83 UNITS, SINGLE
     Route: 030
     Dates: start: 20100201, end: 20100201

REACTIONS (8)
  - FATIGUE [None]
  - NAUSEA [None]
  - DIZZINESS [None]
  - COLD SWEAT [None]
  - PANIC REACTION [None]
  - VISUAL IMPAIRMENT [None]
  - VISION BLURRED [None]
  - MUSCULAR WEAKNESS [None]
